FAERS Safety Report 10882118 (Version 1)
Quarter: 2015Q1

REPORT INFORMATION
  Report Type: Spontaneous
  Country: US (occurrence: None)
  Receive Date: 20150225
  Receipt Date: 20150225
  Transmission Date: 20150721
  Serious: No
  Sender: FDA-Public Use
  Company Number: None

PATIENT
  Age: 23 Year
  Sex: Female
  Weight: 52.62 kg

DRUGS (4)
  1. HYOSCYAMINE [Concomitant]
     Active Substance: HYOSCYAMINE
  2. OMEPRAZOLE. [Concomitant]
     Active Substance: OMEPRAZOLE
  3. BIAXIN [Suspect]
     Active Substance: CLARITHROMYCIN
     Indication: HELICOBACTER INFECTION
     Route: 048
     Dates: start: 20150202, end: 20150214
  4. BIAXIN [Suspect]
     Active Substance: CLARITHROMYCIN
     Indication: BACTERIAL INFECTION
     Route: 048
     Dates: start: 20150202, end: 20150214

REACTIONS (3)
  - Emotional disorder [None]
  - Mental disorder [None]
  - Anxiety [None]

NARRATIVE: CASE EVENT DATE: 20150214
